FAERS Safety Report 8456364-5 (Version None)
Quarter: 2012Q2

REPORT INFORMATION
  Report Type: 
  Country: None (occurrence: None)
  Receive Date: 20120621
  Receipt Date: 20120615
  Transmission Date: 20120825
  Serious: Yes (Hospitalization)
  Sender: FDA-Public Use
  Company Number: FR-GLAXOSMITHKLINE-B0808552A

PATIENT
  Sex: Female

DRUGS (5)
  1. STALEVO 100 [Suspect]
     Indication: PARKINSON'S DISEASE
     Dosage: 4UNIT PER DAY
     Route: 048
  2. MODOPAR [Suspect]
     Indication: PARKINSON'S DISEASE
     Dosage: 62.5MG PER DAY
     Route: 048
     Dates: end: 20120320
  3. PAROXETINE HCL [Suspect]
     Indication: DEPRESSION
     Dosage: 20MG PER DAY
     Route: 048
     Dates: end: 20120320
  4. CALCIUM CARBONATE [Concomitant]
     Route: 065
  5. EXELON [Concomitant]
     Route: 065

REACTIONS (8)
  - DYSKINESIA [None]
  - CONFUSIONAL STATE [None]
  - FALL [None]
  - FOOD AVERSION [None]
  - ANXIETY [None]
  - HALLUCINATION, VISUAL [None]
  - AGITATION [None]
  - DISORIENTATION [None]
